FAERS Safety Report 4455013-0 (Version None)
Quarter: 2004Q3

REPORT INFORMATION
  Report Type: 
  Country: None (occurrence: None)
  Receive Date: 20040921
  Receipt Date: 20040913
  Transmission Date: 20050211
  Serious: Yes (Other)
  Sender: FDA-Public Use
  Company Number: PHBS2004BR12092

PATIENT
  Age: 46 Year
  Sex: Male
  Weight: 60 kg

DRUGS (5)
  1. MELLARIL [Suspect]
     Indication: MENTAL DISORDER
     Dosage: 500 MG/D
     Route: 048
     Dates: start: 20040101, end: 20040801
  2. CARBOLITIUM [Concomitant]
     Dosage: 300 MG/D
     Route: 048
  3. AKINETON [Concomitant]
     Indication: MENTAL DISORDER
     Dosage: 2 MG/D
     Route: 048
  4. CINOTOL [Concomitant]
     Route: 065
  5. HALDOL [Concomitant]
     Dosage: 1 MG/D
     Route: 065

REACTIONS (3)
  - DIZZINESS [None]
  - DRY MOUTH [None]
  - SYNCOPE [None]
